FAERS Safety Report 16376003 (Version 1)
Quarter: 2019Q2

REPORT INFORMATION
  Report Type: Spontaneous
  Country: GB (occurrence: GB)
  Receive Date: 20190531
  Receipt Date: 20190531
  Transmission Date: 20190711
  Serious: Yes (Hospitalization)
  Sender: FDA-Public Use
  Company Number: GB-ACCORD-129906

PATIENT
  Age: 58 Year
  Sex: Male
  Weight: 98.25 kg

DRUGS (17)
  1. THIAMINE. [Concomitant]
     Active Substance: THIAMINE
  2. GABAPENTIN. [Concomitant]
     Active Substance: GABAPENTIN
  3. DOCUSATE/DOCUSATE CALCIUM/DOCUSATE POTASSIUM/DOCUSATE SODIUM [Concomitant]
  4. LENALIDOMIDE [Concomitant]
     Active Substance: LENALIDOMIDE
     Indication: CHEMOTHERAPY
     Dates: start: 20190319, end: 20190330
  5. MORPHINE [Concomitant]
     Active Substance: MORPHINE
  6. ESOMEPRAZOLE/ESOMEPRAZOLE MAGNESIUM/ESOMEPRAZOLE SODIUM [Concomitant]
  7. PARACETAMOL [Concomitant]
     Active Substance: ACETAMINOPHEN
  8. ALLOPURINOL. [Suspect]
     Active Substance: ALLOPURINOL
     Indication: CHEMOTHERAPY
     Route: 048
     Dates: start: 20190319, end: 20190326
  9. SULFAMETHOXAZOLE/TRIMETHOPRIM [Suspect]
     Active Substance: SULFAMETHOXAZOLE\TRIMETHOPRIM
     Indication: CHEMOTHERAPY
     Route: 048
     Dates: start: 20190319, end: 20190327
  10. DEXAMETHASONE. [Concomitant]
     Active Substance: DEXAMETHASONE
     Dates: start: 20190319, end: 20190330
  11. FOLATE SODIUM/FOLIC ACID [Concomitant]
  12. SENNA ALEXANDRINA [Concomitant]
     Active Substance: SENNA LEAF
  13. ZOLEDRONIC ACID [Concomitant]
     Active Substance: ZOLEDRONIC ACID
     Dates: start: 20190319
  14. ADCAL-D3 [Concomitant]
     Active Substance: CALCIUM CARBONATE\CHOLECALCIFEROL
  15. ENOXAPARIN/ENOXAPARIN SODIUM [Concomitant]
     Dates: start: 20190319
  16. LACTULOSE. [Concomitant]
     Active Substance: LACTULOSE
  17. NICOTINAMIDE/PYRIDOXINE HYDROCHLORIDE/RIBOFLAVIN/THIAMINE HYDROCHLORIDE [Concomitant]

REACTIONS (5)
  - Stevens-Johnson syndrome [Not Recovered/Not Resolved]
  - Pain [Unknown]
  - Rash pruritic [Unknown]
  - Oral pain [Unknown]
  - Off label use [Unknown]

NARRATIVE: CASE EVENT DATE: 20190325
